FAERS Safety Report 24692676 (Version 1)
Quarter: 2024Q4

REPORT INFORMATION
  Report Type: Spontaneous
  Country: CA (occurrence: CA)
  Receive Date: 20241203
  Receipt Date: 20241203
  Transmission Date: 20250115
  Serious: Yes (Life-Threatening, Hospitalization, Disabling, Other)
  Sender: TAKEDA
  Company Number: CA-LUNDBECK-DKLU4007501

PATIENT
  Age: 38 Year
  Sex: Male

DRUGS (1)
  1. TRINTELLIX [Suspect]
     Active Substance: VORTIOXETINE HYDROBROMIDE
     Indication: Product used for unknown indication
     Dosage: 10 MILLIGRAM, QD

REACTIONS (4)
  - Akathisia [Not Recovered/Not Resolved]
  - Hallucination [Not Recovered/Not Resolved]
  - Illusion [Not Recovered/Not Resolved]
  - Visual snow syndrome [Not Recovered/Not Resolved]
